FAERS Safety Report 5489163-7 (Version None)
Quarter: 2007Q3

REPORT INFORMATION
  Report Type: 
  Country: None (occurrence: None)
  Receive Date: 20070925
  Receipt Date: 20070706
  Transmission Date: 20080115
  Serious: No
  Sender: FDA-Public Use
  Company Number: 2007US001244

PATIENT
  Age: 79 Year
  Sex: Male

DRUGS (2)
  1. VESICARE [Suspect]
     Indication: NOCTURIA
     Dosage: 5 MG
  2. FUROSEMIDE(FUROSEMIDE SODIUM) [Concomitant]

REACTIONS (1)
  - OEDEMA PERIPHERAL [None]
